FAERS Safety Report 7687827-8 (Version None)
Quarter: 2011Q3

REPORT INFORMATION
  Report Type: 
  Country: None (occurrence: None)
  Receive Date: 20110817
  Receipt Date: 20110803
  Transmission Date: 20111222
  Serious: Yes (Hospitalization)
  Sender: FDA-Public Use
  Company Number: DE-CELGENEUS-062-21880-10122185

PATIENT
  Age: 52 Year
  Sex: Female
  Weight: 42 kg

DRUGS (11)
  1. REVLIMID [Suspect]
     Indication: ACUTE MYELOID LEUKAEMIA
     Route: 048
     Dates: start: 20100819
  2. VALCYTE [Concomitant]
     Indication: PROPHYLAXIS
     Dosage: 900 MILLIGRAM
     Route: 065
     Dates: start: 20101007
  3. OLICLINOMEL N4-440 E [Concomitant]
     Indication: NUTRITIONAL SUPPORT
     Route: 051
     Dates: start: 20101201, end: 20101228
  4. NUTRIFLEX ^BRAUN^ [Concomitant]
     Indication: NUTRITIONAL SUPPORT
     Route: 051
     Dates: start: 20101201, end: 20101228
  5. REVLIMID [Suspect]
     Dosage: 5 MILLIGRAM
     Route: 048
     Dates: start: 20101125, end: 20101215
  6. PREDNISONE [Concomitant]
     Indication: THROMBOSIS PROPHYLAXIS
     Dosage: 10 MILLIGRAM
     Route: 065
     Dates: start: 20100901
  7. PREDNISONE [Concomitant]
     Dosage: 15 MILLIGRAM
     Route: 065
     Dates: start: 20101201
  8. FOLSAN [Concomitant]
     Route: 065
  9. COTRIM [Concomitant]
     Route: 065
  10. ASPIRIN [Concomitant]
     Dosage: 100 MILLIGRAM
     Route: 065
  11. MAGNESIUM [Concomitant]
     Route: 065
     Dates: start: 20101201

REACTIONS (2)
  - GASTROENTERITIS CLOSTRIDIAL [None]
  - GRAFT VERSUS HOST DISEASE [None]
